FAERS Safety Report 7028720-3 (Version None)
Quarter: 2010Q4

REPORT INFORMATION
  Report Type: 
  Country: None (occurrence: None)
  Receive Date: 20101004
  Receipt Date: 20101004
  Transmission Date: 20110411
  Serious: Yes (Other)
  Sender: FDA-Public Use
  Company Number: None

PATIENT
  Age: 23 Year
  Sex: Female
  Weight: 54.4316 kg

DRUGS (1)
  1. SINUS RINSE ADULT NEILMED [Suspect]
     Indication: MULTIPLE ALLERGIES
     Dates: start: 20090410, end: 20100927

REACTIONS (5)
  - NASAL DISCOMFORT [None]
  - PRODUCT CONTAMINATION [None]
  - PRODUCT EXPIRATION DATE ISSUE [None]
  - PRODUCT LABEL ISSUE [None]
  - PRODUCT LOT NUMBER ISSUE [None]
